FAERS Safety Report 19475265 (Version 1)
Quarter: 2021Q2

REPORT INFORMATION
  Report Type: Report from Study
  Country: US (occurrence: US)
  Receive Date: 20210629
  Receipt Date: 20210629
  Transmission Date: 20210717
  Serious: Yes (Death)
  Sender: FDA-Public Use
  Company Number: US-GILEAD-2021-0538070

PATIENT
  Age: 53 Year
  Sex: Male
  Weight: 79 kg

DRUGS (15)
  1. BIOTENE [FLUORINE;XYLITOL] [Concomitant]
     Active Substance: SODIUM FLUORIDE\SODIUM MONOFLUOROPHOSPHATE
     Dosage: 15,ML,OTHER
     Route: 048
     Dates: start: 20191231
  2. MIRALAX [Concomitant]
     Active Substance: POLYETHYLENE GLYCOL 3350
     Dosage: 17,G,DAILY
     Route: 048
     Dates: start: 20191231
  3. COLACE [Concomitant]
     Active Substance: DOCUSATE SODIUM
     Dosage: 200,MG,DAILY
     Route: 048
     Dates: start: 20191231
  4. OXYCODONE [Concomitant]
     Active Substance: OXYCODONE
     Dosage: 20,MG,AS NECESSARY
     Route: 048
     Dates: start: 20191201
  5. VANCOMYCIN [Concomitant]
     Active Substance: VANCOMYCIN
     Dosage: 900,MG,THREE TIMES DAILY
     Route: 042
     Dates: start: 20191231
  6. ALLOPURINOL. [Concomitant]
     Active Substance: ALLOPURINOL
     Dosage: 300,MG,DAILY
     Route: 048
     Dates: start: 20191231
  7. ENOXAPARIN [Concomitant]
     Active Substance: ENOXAPARIN
     Dosage: 40,MG,TWICE DAILY
     Route: 058
     Dates: start: 20200106
  8. OXYCODONE [Concomitant]
     Active Substance: OXYCODONE
     Dosage: 10,MG,AS NECESSARY
     Route: 048
     Dates: start: 2019
  9. SENNA [SENNOSIDE A+B] [Concomitant]
     Active Substance: SENNOSIDES A AND B
     Dosage: 17.2,MG,DAILY
     Route: 048
     Dates: start: 20191231
  10. MORPHINE [Concomitant]
     Active Substance: MORPHINE
     Dosage: 30,MG,TWICE DAILY
     Route: 048
     Dates: start: 2019
  11. TRAMADOL. [Concomitant]
     Active Substance: TRAMADOL
     Dosage: 50,MG,AS NECESSARY
     Route: 048
     Dates: start: 20191010
  12. AXICABTAGENE CILOLEUCEL [Suspect]
     Active Substance: AXICABTAGENE CILOLEUCEL
     Indication: DIFFUSE LARGE B-CELL LYMPHOMA
     Route: 050
  13. HYDROCODONE BITARTRATE AND ACETAMINOPHEN [Concomitant]
     Active Substance: ACETAMINOPHEN\HYDROCODONE BITARTRATE
     Dosage: 10,MG,AS NECESSARY
     Route: 048
     Dates: start: 2019
  14. PANTOPRAZOLE [Concomitant]
     Active Substance: PANTOPRAZOLE
     Dosage: 40,MG,DAILY
     Route: 048
     Dates: start: 20191231
  15. YESCARTA [Suspect]
     Active Substance: AXICABTAGENE CILOLEUCEL
     Indication: DIFFUSE LARGE B-CELL LYMPHOMA
     Route: 042

REACTIONS (1)
  - Diffuse large B-cell lymphoma [Fatal]

NARRATIVE: CASE EVENT DATE: 20200530
